FAERS Safety Report 8777493 (Version 2)
Quarter: 2012Q4

REPORT INFORMATION
  Report Type: Report from Study
  Country: NL (occurrence: NL)
  Receive Date: 20120910
  Receipt Date: 20120920
  Transmission Date: 20130627
  Serious: Yes (Other)
  Sender: FDA-Public Use
  Company Number: NL-AMGEN-NLDCT2012055434

PATIENT
  Age: 62 Year

DRUGS (2)
  1. PANITUMUMAB [Suspect]
     Indication: OESOPHAGEAL CARCINOMA
     Dosage: 440 mg, qwk
     Route: 042
     Dates: start: 20110608, end: 20110608
  2. CETIRIZINE [Concomitant]
     Dosage: UNK UNK, prn
     Route: 048

REACTIONS (1)
  - Anaphylactic shock [Recovered/Resolved]
